FAERS Safety Report 15338608 (Version 1)
Quarter: 2018Q3

REPORT INFORMATION
  Report Type: Other
  Country: US (occurrence: US)
  Receive Date: 20180831
  Receipt Date: 20180831
  Transmission Date: 20181010
  Serious: No
  Sender: FDA-Public Use
  Company Number: US-INTERCEPT-PMOCA2018000967

PATIENT

DRUGS (15)
  1. ACTIGALL [Concomitant]
     Active Substance: URSODIOL
     Dosage: 500 MG, BID
  2. DELTASONE [Concomitant]
     Active Substance: PREDNISONE
     Dosage: 40 MG, QD
     Route: 065
  3. LOFIBRA [Concomitant]
     Active Substance: FENOFIBRATE
     Dosage: 54 MG, QD
     Route: 048
  4. OCALIVA [Suspect]
     Active Substance: OBETICHOLIC ACID
     Indication: PRIMARY BILIARY CHOLANGITIS
     Dosage: 5 MG, QD
     Route: 048
     Dates: start: 20160923, end: 20170406
  5. ACZONE [Concomitant]
     Active Substance: DAPSONE
     Dosage: 5 %, QD
     Route: 061
  6. ESTRACE [Concomitant]
     Active Substance: ESTRADIOL
     Dosage: 1 G, UNK
  7. OCALIVA [Suspect]
     Active Substance: OBETICHOLIC ACID
     Dosage: 5 MG, QD
     Route: 048
     Dates: start: 201801, end: 20180415
  8. ESTRACE [Concomitant]
     Active Substance: ESTRADIOL
     Dosage: 2 G, QD
     Route: 067
  9. ESTRACE [Concomitant]
     Active Substance: ESTRADIOL
     Dosage: 1 G, QD
  10. BACTROBAN [Concomitant]
     Active Substance: MUPIROCIN\MUPIROCIN CALCIUM
     Dosage: UNK UNK, BID
     Route: 045
  11. ULTRACET [Concomitant]
     Active Substance: ACETAMINOPHEN\TRAMADOL HYDROCHLORIDE
     Dosage: UNK MG, PRN
  12. PERCOCET [Concomitant]
     Active Substance: ACETAMINOPHEN\OXYCODONE HYDROCHLORIDE
     Dosage: UNK MG, PRN
  13. OCALIVA [Suspect]
     Active Substance: OBETICHOLIC ACID
     Dosage: 10 MG, QD
     Route: 048
     Dates: start: 20170406, end: 201801
  14. LEXAPRO [Suspect]
     Active Substance: ESCITALOPRAM OXALATE
     Dosage: 10 MG, QD
     Route: 048
  15. CALCIUM CARBONATE AND VITAMIN D [Concomitant]
     Active Substance: CALCIUM CARBONATE\VITAMIN D
     Route: 048

REACTIONS (3)
  - Fatigue [Unknown]
  - Pruritus [Recovered/Resolved]
  - Constipation [Unknown]

NARRATIVE: CASE EVENT DATE: 20180415
